FAERS Safety Report 23306301 (Version 1)
Quarter: 2023Q4

REPORT INFORMATION
  Report Type: Spontaneous
  Country: DE (occurrence: DE)
  Receive Date: 20231218
  Receipt Date: 20231218
  Transmission Date: 20240109
  Serious: Yes (Other)
  Sender: FDA-Public Use
  Company Number: DE-ALKEM LABORATORIES LIMITED-DE-ALKEM-2023-15518

PATIENT
  Age: 42 Year
  Sex: Female
  Weight: 77.5 kg

DRUGS (7)
  1. TOLVAPTAN [Suspect]
     Active Substance: TOLVAPTAN
     Indication: Congenital cystic kidney disease
     Dosage: 45 MILLIGRAM, QD (EVERY 1 DAY), TABLET
     Route: 065
     Dates: start: 20230630, end: 20231111
  2. TOLVAPTAN [Suspect]
     Active Substance: TOLVAPTAN
     Dosage: 15 MILLIGRAM, QD (EVERY 1 DAY), TABLET
     Route: 065
     Dates: start: 20230630, end: 20231111
  3. INDAPAMIDE [Concomitant]
     Active Substance: INDAPAMIDE
     Indication: Blood pressure measurement
     Dosage: UNK
     Route: 065
     Dates: start: 20230630, end: 20230731
  4. OPIPRAMOL [Concomitant]
     Active Substance: OPIPRAMOL
     Indication: Product used for unknown indication
     Dosage: 0.5 DOSAGE FORM, QD (EVERY 1 DAY)
     Route: 065
     Dates: start: 20230925
  5. RAMIPRIL AL [Concomitant]
     Indication: Product used for unknown indication
     Dosage: UNK
     Route: 065
  6. RAMIPRIL AL [Concomitant]
     Dosage: 1 DOSAGE FORM, QD (EVERY 1 DAY)
     Route: 065
     Dates: start: 20230731
  7. RAMIPRIL [Concomitant]
     Active Substance: RAMIPRIL
     Indication: Product used for unknown indication
     Dosage: UNK
     Route: 065
     Dates: start: 20190719, end: 20230730

REACTIONS (1)
  - Hepatic enzyme increased [Not Recovered/Not Resolved]
